FAERS Safety Report 7935956-3 (Version None)
Quarter: 2011Q4

REPORT INFORMATION
  Report Type: 
  Country: None (occurrence: None)
  Receive Date: 20111123
  Receipt Date: 20111117
  Transmission Date: 20120403
  Serious: Yes (Other)
  Sender: FDA-Public Use
  Company Number: US-JNJFOC-20111108142

PATIENT
  Sex: Male
  Weight: 72.58 kg

DRUGS (1)
  1. REMICADE [Suspect]
     Indication: RHEUMATOID ARTHRITIS
     Route: 042
     Dates: start: 20090101, end: 20111101

REACTIONS (5)
  - HEART RATE INCREASED [None]
  - OXYGEN SATURATION DECREASED [None]
  - HYPERHIDROSIS [None]
  - DYSPNOEA [None]
  - BODY TEMPERATURE INCREASED [None]
